FAERS Safety Report 19737988 (Version 3)
Quarter: 2025Q4

REPORT INFORMATION
  Report Type: Spontaneous
  Country: US (occurrence: US)
  Receive Date: 20210823
  Receipt Date: 20251226
  Transmission Date: 20260118
  Serious: No
  Sender: NOVARTIS
  Company Number: US-NOVARTISTESTPH-NVSC2021US180144

PATIENT
  Age: 30 Year

DRUGS (1)
  1. KESIMPTA [Suspect]
     Active Substance: OFATUMUMAB
     Indication: Relapsing multiple sclerosis
     Dosage: 20 MG, QMO
     Route: 058
     Dates: start: 20210707

REACTIONS (11)
  - Cold sweat [Recovering/Resolving]
  - Pain [Recovering/Resolving]
  - Diplopia [Recovering/Resolving]
  - Tremor [Recovering/Resolving]
  - Visual acuity reduced [Recovering/Resolving]
  - Headache [Recovering/Resolving]
  - Chills [Recovering/Resolving]
  - Insomnia [Recovering/Resolving]
  - Visual impairment [Recovering/Resolving]
  - Fatigue [Recovering/Resolving]
  - Pyrexia [Recovering/Resolving]

NARRATIVE: CASE EVENT DATE: 20210707
